FAERS Safety Report 6590312-8 (Version None)
Quarter: 2010Q1

REPORT INFORMATION
  Report Type: 
  Country: None (occurrence: None)
  Receive Date: 20100219
  Receipt Date: 20100216
  Transmission Date: 20100710
  Serious: Yes (Hospitalization)
  Sender: FDA-Public Use
  Company Number: US-SANOFI-AVENTIS-200912384US

PATIENT
  Age: 47 Year
  Sex: Female
  Weight: 81 kg

DRUGS (29)
  1. ALLEGRA D 24 HOUR [Suspect]
     Dosage: DOSE AS USED: UNK
     Route: 048
     Dates: start: 20050101, end: 20080101
  2. ALLEGRA D 24 HOUR [Suspect]
     Indication: URTICARIA
     Dosage: DOSE AS USED: UNK
     Route: 048
     Dates: start: 20050101, end: 20080101
  3. FOLIC ACID [Concomitant]
     Dosage: DOSE AS USED: UNK
     Route: 048
  4. ESTRADIOL [Concomitant]
     Indication: HYSTERECTOMY
     Route: 048
  5. ESTRADIOL [Concomitant]
     Indication: MENOPAUSE
     Route: 048
  6. IMIPRAMINE [Concomitant]
     Indication: ANXIETY
     Route: 048
  7. IMIPRAMINE [Concomitant]
     Route: 048
  8. SINGULAIR [Concomitant]
     Indication: ASTHMA
  9. NEXIUM [Concomitant]
  10. NEURONTIN [Concomitant]
     Indication: NEUROPATHY PERIPHERAL
     Dosage: 1200 X3
     Route: 048
  11. ACETAMINOPHEN W/ PROPOXYPHENE HCL [Concomitant]
     Indication: PAIN
     Dosage: 100-650
  12. ALL OTHER THERAPEUTIC PRODUCTS [Concomitant]
  13. ADVAIR DISKUS 100/50 [Concomitant]
  14. DARVOCET-N 100 [Concomitant]
     Indication: PAIN
  15. ATENOLOL [Concomitant]
     Dosage: 100-650 MG ONE EVERY 4 HOURS PRN
  16. HYOSCYAMINE [Concomitant]
  17. ALBUTEROL [Concomitant]
     Indication: COUGH
     Dosage: 2 PUFFS FOUR TIMES DAILY PRN
  18. ALBUTEROL [Concomitant]
     Dosage: 2 PUFFS FOUR TIMES DAILY PRN
  19. ALBUTEROL [Concomitant]
     Dosage: 2 PUFFS FOUR TIMES DAILY PRN
  20. DOVONEX [Concomitant]
     Dosage: APPLY TO INFECTED AREA TWICE DAILY
  21. LIPITOR [Concomitant]
     Route: 048
  22. LIPITOR [Concomitant]
     Route: 048
  23. RITALIN [Concomitant]
     Dosage: 1/2 BID
  24. ZANTAC [Concomitant]
     Route: 048
  25. CLARITIN [Concomitant]
     Route: 048
  26. CLARITIN [Concomitant]
     Indication: NASAL CONGESTION
     Route: 048
  27. PAXIL [Concomitant]
     Indication: DEPRESSION
     Route: 048
  28. CRESTOR [Concomitant]
  29. ZYRTEC [Concomitant]

REACTIONS (10)
  - ABDOMINAL DISCOMFORT [None]
  - ABDOMINAL PAIN UPPER [None]
  - ANAEMIA [None]
  - DECREASED APPETITE [None]
  - DIARRHOEA [None]
  - FLATULENCE [None]
  - INTESTINAL OBSTRUCTION [None]
  - MEDICATION RESIDUE [None]
  - POUCHITIS [None]
  - WEIGHT DECREASED [None]
